FAERS Safety Report 8882476 (Version 2)
Quarter: 2013Q1

REPORT INFORMATION
  Report Type: Report from Study
  Country: JP (occurrence: JP)
  Receive Date: 20121103
  Receipt Date: 20130227
  Transmission Date: 20140127
  Serious: Yes (Hospitalization, Other)
  Sender: FDA-Public Use
  Company Number: JP-009507513-2012SP024180

PATIENT
  Age: 63 Year
  Sex: Female
  Weight: 50 kg

DRUGS (21)
  1. PEGINTRON [Suspect]
     Indication: CHRONIC HEPATITIS C
     Dosage: 80 MICROGRAM/BODY, QW
     Route: 058
     Dates: start: 20120409, end: 20120918
  2. REBETOL [Suspect]
     Indication: CHRONIC HEPATITIS C
     Dosage: 600 MG, QD
     Route: 048
     Dates: start: 20120409, end: 20120513
  3. REBETOL [Suspect]
     Dosage: 400 MG, QD
     Route: 048
     Dates: start: 20120514, end: 20120520
  4. REBETOL [Suspect]
     Dosage: 200 MG, QD
     Route: 048
     Dates: start: 20120521, end: 20120923
  5. REBETOL [Suspect]
     Dosage: UNK
  6. PREDONINE [Suspect]
     Indication: ADVERSE EVENT
     Dosage: 30 MG, QD
     Route: 048
     Dates: start: 20120417, end: 20120423
  7. PREDONINE [Suspect]
     Dosage: 15 MG, QD
     Route: 048
     Dates: start: 20120425, end: 20120501
  8. PREDONINE [Suspect]
     Dosage: 10 MG, QD
     Route: 048
     Dates: start: 20120502, end: 20120507
  9. PREDONINE [Suspect]
     Dosage: UNK
  10. TELAVIC [Suspect]
     Indication: CHRONIC HEPATITIS C
     Dosage: 2250 MG, QD
     Route: 048
     Dates: start: 20120409, end: 20120527
  11. TELAVIC [Suspect]
     Dosage: 750 MG, QD
     Route: 048
     Dates: start: 20120528, end: 20120603
  12. URSO [Concomitant]
     Indication: CHRONIC HEPATITIS C
     Dosage: 600 MG, QD
     Route: 048
  13. LOXONIN [Concomitant]
     Indication: PROPHYLAXIS
     Dosage: 90 MG, QD
     Route: 048
     Dates: start: 20120409, end: 20120812
  14. LOXONIN [Concomitant]
     Dosage: 60MG,QD, AS NEEDED,DAILY DOSE UNKNOWN
     Route: 048
  15. LOXONIN [Concomitant]
     Dosage: 60 MG, QD
     Route: 048
     Dates: end: 20120812
  16. VOLTAREN [Concomitant]
     Indication: PROPHYLAXIS
     Dosage: 25 MG, QD
     Route: 054
     Dates: start: 20120409, end: 20120409
  17. SELBEX [Concomitant]
     Indication: PROPHYLAXIS
     Dosage: 150 MG, QD
     Route: 048
     Dates: start: 20120409
  18. PARIET [Concomitant]
     Indication: PROPHYLAXIS
     Dosage: 10 MG, QD
     Route: 048
     Dates: start: 20120418, end: 20120507
  19. MYSLEE [Concomitant]
     Indication: INSOMNIA
     Dosage: 1TABLET PER DAY AS NEEDED
     Route: 048
     Dates: start: 20120420, end: 20120501
  20. BONALON [Concomitant]
     Indication: PROPHYLAXIS
     Dosage: 35 MG, QW
     Route: 048
     Dates: start: 20120424
  21. DERMOVATE [Concomitant]
     Dosage: Q.S./DAY (AS MUCH AS SUFFICES)
     Route: 061
     Dates: end: 20120507

REACTIONS (2)
  - Drug eruption [Recovering/Resolving]
  - Haemoglobin decreased [Recovered/Resolved]
